FAERS Safety Report 6683265-5 (Version None)
Quarter: 2010Q2

REPORT INFORMATION
  Report Type: 
  Country: None (occurrence: None)
  Receive Date: 20100415
  Receipt Date: 20100401
  Transmission Date: 20101027
  Serious: Yes (Hospitalization)
  Sender: FDA-Public Use
  Company Number: PT-JNJFOC-20100402683

PATIENT
  Sex: Female
  Weight: 40 kg

DRUGS (13)
  1. TRAMAL 100 [Suspect]
     Indication: BACK PAIN
     Route: 042
  2. PARACETAMOL [Suspect]
     Route: 048
  3. PARACETAMOL [Suspect]
     Indication: PAIN
     Route: 048
  4. DEXAMETHASONE [Suspect]
     Indication: MULTIPLE MYELOMA
     Route: 065
  5. ALLOPURINOL [Suspect]
     Indication: HYPERURICAEMIA
     Route: 048
  6. LENALIDOMIDE [Suspect]
     Indication: MULTIPLE MYELOMA
     Route: 048
  7. PARACETAMOL [Suspect]
     Route: 042
  8. SODIUM CITRATE [Concomitant]
     Indication: CONSTIPATION
  9. ACETYLSALICYLIC ACID [Concomitant]
     Indication: THROMBOSIS PROPHYLAXIS
  10. ONDANSETRON [Concomitant]
     Indication: VOMITING
  11. CAFFEINE W/CODEINE PHOSPHATE/PARACETAMOL [Concomitant]
     Indication: BACK PAIN
  12. METOCLOPRAMIDE HYDROCHLORIDE [Concomitant]
     Indication: PROPHYLAXIS OF NAUSEA AND VOMITING
  13. PANTOPRAZOL [Concomitant]
     Indication: GASTROINTESTINAL DISORDER THERAPY

REACTIONS (7)
  - BLOOD ALKALINE PHOSPHATASE INCREASED [None]
  - BLOOD LACTATE DEHYDROGENASE INCREASED [None]
  - GAMMA-GLUTAMYLTRANSFERASE INCREASED [None]
  - LEFT ATRIAL DILATATION [None]
  - TRANSAMINASES INCREASED [None]
  - VENTRICULAR HYPERTROPHY [None]
  - VOMITING [None]
